FAERS Safety Report 5025614-X (Version None)
Quarter: 2006Q2

REPORT INFORMATION
  Report Type: 
  Country: None (occurrence: None)
  Receive Date: 20060614
  Receipt Date: 20060608
  Transmission Date: 20061013
  Serious: Yes (Hospitalization)
  Sender: FDA-Public Use
  Company Number: PHRM2006FR01743

PATIENT
  Age: 64 Year
  Sex: Male

DRUGS (3)
  1. NISISCO [Suspect]
     Indication: HYPERTENSION
     Dosage: 1 DF, QD
     Route: 048
  2. AMLOR [Suspect]
     Indication: HYPERTENSION
     Route: 048
     Dates: start: 20060306, end: 20060326
  3. PREVISCAN [Suspect]
     Indication: THROMBOSIS PROPHYLAXIS
     Dosage: 30 MG/DAY
     Route: 048

REACTIONS (6)
  - DIFFICULTY IN WALKING [None]
  - MUSCULAR WEAKNESS [None]
  - MYALGIA [None]
  - OSTEOARTHRITIS [None]
  - POLYMYALGIA RHEUMATICA [None]
  - RHABDOMYOLYSIS [None]
